FAERS Safety Report 6267552-0 (Version None)
Quarter: 2009Q3

REPORT INFORMATION
  Report Type: 
  Country: None (occurrence: None)
  Receive Date: 20090714
  Receipt Date: 20090706
  Transmission Date: 20100115
  Serious: Yes (Hospitalization, Other)
  Sender: FDA-Public Use
  Company Number: PHHO2008ES13143

PATIENT
  Sex: Female
  Weight: 68 kg

DRUGS (4)
  1. CERTICAN [Suspect]
     Indication: RENAL TRANSPLANT
     Dosage: 4.25 MG
     Route: 048
     Dates: start: 20080814
  2. TACROLIMUS COMP-TAC+ [Suspect]
     Indication: RENAL TRANSPLANT
     Dosage: 525/DAILY
     Route: 048
     Dates: start: 20080814
  3. MYFORTIC [Suspect]
     Indication: RENAL TRANSPLANT
     Dosage: 720MG/DAILY
     Dates: start: 20080427
  4. PREDNISONE TAB [Suspect]
     Indication: RENAL TRANSPLANT
     Dosage: 7.5 MG/DAILY
     Dates: start: 20080429

REACTIONS (12)
  - ABDOMINAL PAIN [None]
  - ANAEMIA [None]
  - DYSURIA [None]
  - ENTEROCOCCAL INFECTION [None]
  - ESCHERICHIA INFECTION [None]
  - GRAFT COMPLICATION [None]
  - HORMONE LEVEL ABNORMAL [None]
  - KLEBSIELLA INFECTION [None]
  - METRORRHAGIA [None]
  - PYREXIA [None]
  - URINARY TRACT INFECTION [None]
  - VOMITING [None]
